FAERS Safety Report 5598451-5 (Version None)
Quarter: 2008Q1

REPORT INFORMATION
  Report Type: 
  Country: None (occurrence: None)
  Receive Date: 20080122
  Receipt Date: 20080111
  Transmission Date: 20080703
  Serious: Yes (Hospitalization)
  Sender: FDA-Public Use
  Company Number: FR-JNJFOC-20080102521

PATIENT
  Age: 57 Year
  Sex: Male

DRUGS (11)
  1. OFLOCET [Suspect]
     Indication: DRUG USE FOR UNKNOWN INDICATION
     Route: 042
  2. TRAMADOL HCL [Suspect]
     Indication: DRUG USE FOR UNKNOWN INDICATION
     Route: 048
  3. KARDEGIC [Concomitant]
     Indication: CEREBROVASCULAR ACCIDENT PROPHYLAXIS
     Route: 048
  4. INIPOMP [Concomitant]
     Route: 048
  5. FORLAX [Concomitant]
     Route: 048
  6. STABLON [Concomitant]
     Route: 048
  7. LYRICA [Concomitant]
     Route: 048
  8. LANSOYL [Concomitant]
     Route: 048
  9. DANTRIUM [Concomitant]
     Route: 048
  10. GENTAMICIN [Concomitant]
     Route: 065
  11. INSULTARD [Concomitant]
     Indication: DIABETES MELLITUS
     Route: 058

REACTIONS (3)
  - CONFUSIONAL STATE [None]
  - GRAND MAL CONVULSION [None]
  - LOSS OF CONSCIOUSNESS [None]
